FAERS Safety Report 21061624 (Version 3)
Quarter: 2022Q3

REPORT INFORMATION
  Report Type: Other
  Country: US (occurrence: None)
  Receive Date: 20220709
  Receipt Date: 20220912
  Transmission Date: 20221027
  Serious: Yes (Hospitalization)
  Sender: FDA-Public Use
  Company Number: US-ROCHE-3134740

PATIENT
  Age: 43 Year
  Sex: Female
  Weight: 86.260 kg

DRUGS (7)
  1. OCREVUS [Suspect]
     Active Substance: OCRELIZUMAB
     Indication: Multiple sclerosis
     Dosage: DATE OF TREATMENT 02/AUG/2022
     Route: 042
     Dates: start: 20211210
  2. OCREVUS [Suspect]
     Active Substance: OCRELIZUMAB
     Indication: Relapsing multiple sclerosis
     Route: 042
     Dates: start: 202012
  3. BACLOFEN [Concomitant]
     Active Substance: BACLOFEN
  4. MAGNESIUM CLOFIBRATE [Concomitant]
     Active Substance: MAGNESIUM CLOFIBRATE
  5. ESTRADIOL [Concomitant]
     Active Substance: ESTRADIOL
  6. CRANBERRY [Concomitant]
     Active Substance: CRANBERRY
  7. SOLU-MEDROL [Concomitant]
     Active Substance: METHYLPREDNISOLONE SODIUM SUCCINATE

REACTIONS (3)
  - COVID-19 [Unknown]
  - Urinary tract infection [Recovered/Resolved]
  - Essential tremor [Not Recovered/Not Resolved]

NARRATIVE: CASE EVENT DATE: 20220626
